FAERS Safety Report 7318504-0 (Version None)
Quarter: 2011Q1

REPORT INFORMATION
  Report Type: 
  Country: None (occurrence: None)
  Receive Date: 20110228
  Receipt Date: 20110215
  Transmission Date: 20110831
  Serious: No
  Sender: FDA-Public Use
  Company Number: US-PFIZER INC-2011005011

PATIENT
  Sex: Male
  Weight: 96.6 kg

DRUGS (7)
  1. LIPITOR [Suspect]
     Indication: BLOOD CHOLESTEROL INCREASED
     Dosage: 20 MG, DAILY
     Route: 048
     Dates: start: 20050101
  2. NEVANAC [Concomitant]
     Indication: GLAUCOMA
     Dosage: IN RIGHT EYE ONCE A DAY OR AS NEEDED
     Route: 031
  3. DORZOLAMIDE [Concomitant]
     Indication: GLAUCOMA
     Dosage: ONCE A DAY IN BOTH EYES
     Route: 031
  4. ACETYLSALICYLIC ACID [Concomitant]
     Dosage: UNK
  5. LUMIGAN [Concomitant]
     Indication: GLAUCOMA
     Dosage: LEFT EYE EVERY OTHER DAY
     Route: 031
  6. CYCLOSPORINE [Concomitant]
     Indication: GLAUCOMA
     Dosage: 2 DROPS ONCE A DAY IN BOTH EYES
     Route: 031
  7. PREDNISONE [Concomitant]
     Indication: GLAUCOMA
     Dosage: 1% IN RIGHT EYE ONCE A DAY
     Route: 031

REACTIONS (2)
  - HYPERTENSION [None]
  - ILL-DEFINED DISORDER [None]
